FAERS Safety Report 18986219 (Version 2)
Quarter: 2022Q2

REPORT INFORMATION
  Report Type: Spontaneous
  Country: US (occurrence: US)
  Receive Date: 20210309
  Receipt Date: 20220419
  Transmission Date: 20220721
  Serious: Yes (Hospitalization, Other)
  Sender: FDA-Public Use
  Company Number: US-TORRENT-00010980

PATIENT
  Age: 75 Year
  Sex: Male

DRUGS (7)
  1. CARBAMAZEPINE [Suspect]
     Active Substance: CARBAMAZEPINE
     Indication: Glossopharyngeal neuralgia
     Dosage: UNKNOWN
     Dates: start: 2019, end: 2019
  2. GABAPENTIN [Concomitant]
     Active Substance: GABAPENTIN
     Indication: Glossopharyngeal neuralgia
     Dosage: UNKNOWN
     Dates: start: 2019
  3. FLUDROCORTISONE [Concomitant]
     Active Substance: FLUDROCORTISONE
     Indication: Glossopharyngeal neuralgia
     Dosage: UNKNOWN
     Dates: start: 2019
  4. PYRIDOSTIGMINE [Concomitant]
     Active Substance: PYRIDOSTIGMINE
     Indication: Glossopharyngeal neuralgia
     Dosage: UNKNOWN
     Dates: start: 2019
  5. DROXIDOPA [Concomitant]
     Active Substance: DROXIDOPA
     Indication: Glossopharyngeal neuralgia
     Dosage: UNKNOWN
     Dates: start: 2019
  6. PSEUDOEPHEDRINE [Concomitant]
     Active Substance: PSEUDOEPHEDRINE
     Indication: Glossopharyngeal neuralgia
     Dosage: UNKNOWN
     Dates: start: 2019
  7. MEXILETINE [Concomitant]
     Active Substance: MEXILETINE
     Indication: Glossopharyngeal neuralgia
     Dosage: UNKNOWN
     Dates: start: 2019

REACTIONS (1)
  - Hypertransaminasaemia [Unknown]

NARRATIVE: CASE EVENT DATE: 20190101
